FAERS Safety Report 4376207-9 (Version None)
Quarter: 2004Q2

REPORT INFORMATION
  Report Type: 
  Country: None (occurrence: None)
  Receive Date: 20040610
  Receipt Date: 20040610
  Transmission Date: 20050107
  Serious: Yes (Hospitalization)
  Sender: FDA-Public Use
  Company Number: None

PATIENT
  Age: 35 Year
  Sex: Male
  Weight: 106.5953 kg

DRUGS (2)
  1. SILDENAFIL [Suspect]
     Indication: CARDIAC FAILURE CONGESTIVE
     Dosage: 25 MG TID
     Dates: start: 20040601, end: 20040610
  2. DOBUTAMINE [Concomitant]

REACTIONS (3)
  - CARDIAC FAILURE [None]
  - PYREXIA [None]
  - RASH [None]
